FAERS Safety Report 8518714-0 (Version None)
Quarter: 2012Q3

REPORT INFORMATION
  Report Type: 
  Country: None (occurrence: None)
  Receive Date: 20120718
  Receipt Date: 20110617
  Transmission Date: 20120928
  Serious: Yes (Hospitalization)
  Sender: FDA-Public Use
  Company Number: US-BRISTOL-MYERS SQUIBB COMPANY-15841794

PATIENT
  Age: 78 Year
  Sex: Female

DRUGS (3)
  1. LOPRESSOR [Concomitant]
  2. COUMADIN [Suspect]
     Dates: start: 20070101
  3. LANOXIN [Concomitant]

REACTIONS (1)
  - INTRA-ABDOMINAL HAEMORRHAGE [None]
